FAERS Safety Report 7219727-1 (Version None)
Quarter: 2011Q1

REPORT INFORMATION
  Report Type: 
  Country: None (occurrence: None)
  Receive Date: 20110111
  Receipt Date: 20110106
  Transmission Date: 20110831
  Serious: Yes (Death, Other)
  Sender: FDA-Public Use
  Company Number: PHHY2010JP70706

PATIENT
  Sex: Male
  Weight: 89 kg

DRUGS (1)
  1. NEORAL [Suspect]
     Indication: NEURODERMATITIS
     Dosage: UNK
     Route: 048
     Dates: start: 20050101, end: 20100921

REACTIONS (3)
  - PANCREATITIS ACUTE [None]
  - OESOPHAGEAL CARCINOMA [None]
  - STAPHYLOCOCCAL INFECTION [None]
